FAERS Safety Report 12774190 (Version 1)
Quarter: 2016Q3

REPORT INFORMATION
  Report Type: Spontaneous
  Country: US (occurrence: US)
  Receive Date: 20160923
  Receipt Date: 20160923
  Transmission Date: 20161109
  Serious: No
  Sender: FDA-Public Use
  Company Number: US-PFIZER INC-2016441260

PATIENT
  Sex: Female

DRUGS (4)
  1. BACITRACIN. [Suspect]
     Active Substance: BACITRACIN
     Dosage: UNK
  2. NEOMYCIN SULFATE. [Suspect]
     Active Substance: NEOMYCIN SULFATE
     Dosage: UNK
  3. ETHYLENEDIAMINE DIHYDROCHLORIDE [Suspect]
     Active Substance: ETHYLENEDIAMINE DIHYDROCHLORIDE
     Dosage: UNK
  4. NICKEL [Suspect]
     Active Substance: NICKEL
     Dosage: UNK

REACTIONS (4)
  - Allergy to chemicals [None]
  - Drug hypersensitivity [Unknown]
  - Drug hypersensitivity [None]
  - Allergy to metals [None]
